FAERS Safety Report 9461656 (Version 1)
Quarter: 2013Q3

REPORT INFORMATION
  Report Type: Spontaneous
  Country: US (occurrence: None)
  Receive Date: 20130815
  Receipt Date: 20130815
  Transmission Date: 20140515
  Serious: Yes (Life-Threatening, Disabling, Other)
  Sender: FDA-Public Use
  Company Number: None

PATIENT
  Age: 26 Year
  Sex: Female
  Weight: 56.7 kg

DRUGS (9)
  1. PROZAC PROZAC 40MG [Suspect]
     Indication: POST-TRAUMATIC STRESS DISORDER
     Route: 048
     Dates: start: 20130205, end: 20130529
  2. PROZAC PROZAC 40MG [Suspect]
     Indication: DEPRESSION
     Route: 048
     Dates: start: 20130205, end: 20130529
  3. PROZAC PROZAC 40MG [Suspect]
     Indication: GENERALISED ANXIETY DISORDER
     Route: 048
     Dates: start: 20130205, end: 20130529
  4. EFFEXOR [Concomitant]
  5. CITRATE [Concomitant]
  6. POTASSIUM [Concomitant]
  7. XANX [Concomitant]
  8. MACROBID [Concomitant]
  9. TRIOMITHIZINE [Concomitant]

REACTIONS (10)
  - Sleep disorder [None]
  - Muscle twitching [None]
  - Muscular weakness [None]
  - Gait disturbance [None]
  - Impaired driving ability [None]
  - Loss of consciousness [None]
  - Vomiting [None]
  - Eating disorder [None]
  - Drug interaction [None]
  - Quality of life decreased [None]
